FAERS Safety Report 17235399 (Version 1)
Quarter: 2020Q1

REPORT INFORMATION
  Report Type: Spontaneous
  Country: US (occurrence: US)
  Receive Date: 20200106
  Receipt Date: 20200106
  Transmission Date: 20200409
  Serious: Yes (Other)
  Sender: FDA-Public Use
  Company Number: US-TEVA-2020-US-1163169

PATIENT
  Age: 74 Year
  Sex: Female

DRUGS (4)
  1. ZINC OXIDE. [Suspect]
     Active Substance: ZINC OXIDE
     Indication: SQUAMOUS CELL CARCINOMA
     Dosage: CHEMOWRAPS CONTAINING 20 G OF 5% FLUOROURACIL CREAM TO THE SKIN UNDER OCCLUSIVE ZINC OXIDE-IMPREG...
     Route: 061
  2. 5- FLUOROURACIL [Suspect]
     Active Substance: FLUOROURACIL
     Indication: SQUAMOUS CELL CARCINOMA
     Dosage: 500 MG/5 ML (0.5 MG/ NODULE)
     Route: 026
  3. 5- FLUOROURACIL [Suspect]
     Active Substance: FLUOROURACIL
     Dosage: CHEMOWRAPS CONTAINING 20 G OF 5% FLUOROURACIL CREAM TO THE SKIN UNDER OCCLUSIVE ZINC OXIDE-IMPREG...
     Route: 061
  4. ACITRETIN. [Suspect]
     Active Substance: ACITRETIN
     Indication: SQUAMOUS CELL CARCINOMA
     Dosage: 25 MILLIGRAM DAILY;
     Route: 065

REACTIONS (3)
  - Xerosis [Unknown]
  - Alopecia [Unknown]
  - Injection site ulcer [Recovered/Resolved]
